FAERS Safety Report 17688558 (Version 1)
Quarter: 2020Q2

REPORT INFORMATION
  Report Type: Spontaneous
  Country: US (occurrence: US)
  Receive Date: 20200418
  Receipt Date: 20200418
  Transmission Date: 20200714
  Serious: Yes (Death)
  Sender: FDA-Public Use
  Company Number: None

PATIENT
  Age: 20 Year
  Sex: Female

DRUGS (1)
  1. MIGLUSTAT ++ [Suspect]
     Active Substance: MIGLUSTAT
     Indication: LENNOX-GASTAUT SYNDROME
     Route: 048
     Dates: start: 20190208, end: 20200403

REACTIONS (1)
  - Death [None]

NARRATIVE: CASE EVENT DATE: 20200403
